FAERS Safety Report 6619502-2 (Version None)
Quarter: 2010Q1

REPORT INFORMATION
  Report Type: 
  Country: None (occurrence: None)
  Receive Date: 20100309
  Receipt Date: 20100226
  Transmission Date: 20100710
  Serious: Yes (Other)
  Sender: FDA-Public Use
  Company Number: US-JNJFOC-20100301494

PATIENT
  Age: 61 Year
  Sex: Male

DRUGS (3)
  1. REMICADE [Suspect]
     Indication: ANKYLOSING SPONDYLITIS
     Route: 042
  2. PREDNISONE [Concomitant]
     Indication: ANKYLOSING SPONDYLITIS
  3. SOLU-MEDROL [Concomitant]
     Indication: PREMEDICATION

REACTIONS (2)
  - INFUSION RELATED REACTION [None]
  - PROSTATE CANCER [None]
